FAERS Safety Report 7895162-8 (Version None)
Quarter: 2011Q4

REPORT INFORMATION
  Report Type: 
  Country: None (occurrence: None)
  Receive Date: 20111106
  Receipt Date: 20110823
  Transmission Date: 20120403
  Serious: No
  Sender: FDA-Public Use
  Company Number: US-AMGEN-USASP2011042954

PATIENT
  Age: 55 Year
  Sex: Female
  Weight: 81.633 kg

DRUGS (3)
  1. ENBREL [Suspect]
     Indication: PRODUCT USED FOR UNKNOWN INDICATION
     Dosage: 50 MG, QWK
     Route: 058
  2. LOVASTATIN [Concomitant]
     Dosage: 10 MG, UNK
  3. AMITRIPTYLINE HCL [Concomitant]
     Dosage: 25 MG, UNK

REACTIONS (3)
  - INJECTION SITE ERYTHEMA [None]
  - INJECTION SITE SWELLING [None]
  - INJECTION SITE RASH [None]
